FAERS Safety Report 7396948-9 (Version None)
Quarter: 2011Q2

REPORT INFORMATION
  Report Type: 
  Country: None (occurrence: None)
  Receive Date: 20110406
  Receipt Date: 20110328
  Transmission Date: 20111010
  Serious: Yes (Hospitalization, Other)
  Sender: FDA-Public Use
  Company Number: US-ASTRAZENECA-2011SE17336

PATIENT
  Age: 71 Year
  Sex: Male
  Weight: 90.7 kg

DRUGS (5)
  1. NEXIUM [Suspect]
     Indication: GASTROOESOPHAGEAL REFLUX DISEASE
     Route: 048
     Dates: start: 20020101
  2. DILITAZEM [Concomitant]
  3. TOPROL-XL [Concomitant]
  4. TIAMTERENE [Concomitant]
  5. ALLOPURINOL [Concomitant]

REACTIONS (4)
  - FALL [None]
  - WALKING AID USER [None]
  - BONE DENSITY DECREASED [None]
  - HIP FRACTURE [None]
